FAERS Safety Report 7158471 (Version 2)
Quarter: 2012Q4

REPORT INFORMATION
  Report Type: 
  Country: US (occurrence: US)
  Receive Date: 20091026
  Receipt Date: 20121116
  Transmission Date: 20130627
  Serious: Yes (Other)
  Sender: FDA-Public Use
  Company Number: US-ELI_LILLY_AND_COMPANY-US200910003193

PATIENT
  Sex: Female

DRUGS (10)
  1. CYMBALTA [Suspect]
     Indication: DIABETIC NEUROPATHY
     Dosage: 30 mg, UNK
     Dates: start: 2004
  2. CYMBALTA [Suspect]
     Dosage: 60 mg, UNK
  3. CYMBALTA [Suspect]
     Dosage: 90 mg, daily (1/D)
  4. METOPROLOL [Concomitant]
     Dosage: 100 mg, 2/D
  5. METFORMIN [Concomitant]
     Dosage: 1000 mg, 2/D
  6. NOVOLOG [Concomitant]
     Dosage: 15 u, 2/D
  7. NOVOLOG [Concomitant]
     Dosage: 12 u, daily (1/D)
  8. PLAVIX [Concomitant]
     Dosage: 75 mg, daily (1/D)
  9. ASPIRIN [Concomitant]
     Dosage: 81 mg, daily (1/D)
  10. ENALAPRIL [Concomitant]

REACTIONS (11)
  - Coronary artery bypass [Recovered/Resolved]
  - Retinal vascular occlusion [Not Recovered/Not Resolved]
  - Cerebrovascular accident [Recovered/Resolved with Sequelae]
  - Memory impairment [Unknown]
  - Drug withdrawal syndrome [Recovered/Resolved]
  - Abnormal behaviour [Unknown]
  - Visual acuity reduced [Not Recovered/Not Resolved]
  - Drug ineffective [Recovered/Resolved]
  - Mood swings [Unknown]
  - Crying [Unknown]
  - Muscle spasms [Unknown]
